FAERS Safety Report 12660191 (Version 1)
Quarter: 2016Q3

REPORT INFORMATION
  Report Type: Spontaneous
  Country: US (occurrence: US)
  Receive Date: 20160817
  Receipt Date: 20160817
  Transmission Date: 20161109
  Serious: Yes (Other)
  Sender: FDA-Public Use
  Company Number: US-FRI-1000080942

PATIENT
  Age: 21 Year
  Sex: Male

DRUGS (1)
  1. CELEXA [Suspect]
     Active Substance: CITALOPRAM HYDROBROMIDE
     Indication: ILL-DEFINED DISORDER
     Dates: start: 20151111, end: 20151111

REACTIONS (4)
  - Hallucination [Recovered/Resolved]
  - Agitation [Recovered/Resolved]
  - Feeling abnormal [Recovered/Resolved]
  - Seizure [Recovered/Resolved]

NARRATIVE: CASE EVENT DATE: 20151111
